FAERS Safety Report 7770248-7 (Version None)
Quarter: 2011Q3

REPORT INFORMATION
  Report Type: 
  Country: None (occurrence: None)
  Receive Date: 20110922
  Receipt Date: 20101025
  Transmission Date: 20111222
  Serious: No
  Sender: FDA-Public Use
  Company Number: US-ASTRAZENECA-2010SE47792

PATIENT
  Age: 723 Month
  Sex: Female
  Weight: 58.5 kg

DRUGS (3)
  1. SEROQUEL [Suspect]
     Route: 048
  2. RITALIN [Concomitant]
     Dates: start: 20101001
  3. SEROQUEL [Suspect]
     Indication: INSOMNIA
     Route: 048

REACTIONS (4)
  - DRUG INEFFECTIVE [None]
  - ANXIETY [None]
  - DRUG DEPENDENCE [None]
  - PANIC REACTION [None]
